FAERS Safety Report 7738302-3 (Version None)
Quarter: 2011Q3

REPORT INFORMATION
  Report Type: 
  Country: None (occurrence: None)
  Receive Date: 20110908
  Receipt Date: 20110906
  Transmission Date: 20111222
  Serious: Yes (Other)
  Sender: FDA-Public Use
  Company Number: JP-PFIZER INC-2011202435

PATIENT
  Age: 60 Year
  Sex: Male

DRUGS (2)
  1. VARENICLINE TARTRATE [Suspect]
     Dosage: 0.5MG,DAILY
     Route: 048
     Dates: start: 20100112, end: 20100122
  2. CRESTOR [Concomitant]
     Dosage: 2.5MG, DAILY
     Route: 048

REACTIONS (3)
  - ROAD TRAFFIC ACCIDENT [None]
  - SOMNOLENCE [None]
  - ALTERED STATE OF CONSCIOUSNESS [None]
